FAERS Safety Report 9849113 (Version 2)
Quarter: 2014Q1

REPORT INFORMATION
  Report Type: Spontaneous
  Country: JP (occurrence: JP)
  Receive Date: 20140128
  Receipt Date: 20140213
  Transmission Date: 20141002
  Serious: Yes (Other)
  Sender: FDA-Public Use
  Company Number: PHHY2014JP009624

PATIENT
  Sex: 0

DRUGS (2)
  1. NEORAL [Suspect]
     Indication: NEPHROPATHY
     Route: 048
  2. NEORAL [Suspect]
     Route: 050

REACTIONS (3)
  - Mental disorder [None]
  - Elevated mood [Unknown]
  - Oral administration complication [Unknown]
